FAERS Safety Report 6728659-4 (Version None)
Quarter: 2010Q2

REPORT INFORMATION
  Report Type: 
  Country: None (occurrence: None)
  Receive Date: 20100517
  Receipt Date: 20100512
  Transmission Date: 20101027
  Serious: Yes (Hospitalization)
  Sender: FDA-Public Use
  Company Number: US-GILEAD-2010-0028126

PATIENT
  Sex: Female
  Weight: 71.732 kg

DRUGS (17)
  1. LETAIRIS [Suspect]
     Indication: PULMONARY ARTERIAL HYPERTENSION
     Route: 048
     Dates: start: 20080620
  2. OXYGEN [Concomitant]
  3. PLAVIX [Concomitant]
  4. ASPIRIN [Concomitant]
  5. HYDROCHLOROTHIAZIDE [Concomitant]
  6. METOPROLOL TARTRATE [Concomitant]
  7. DILTIAZEM HCL [Concomitant]
  8. COZAAR [Concomitant]
  9. ISOSORBIDE [Concomitant]
  10. PRAVACHOL [Concomitant]
  11. SYNTHROID [Concomitant]
  12. COPPER [Concomitant]
  13. FISH OIL [Concomitant]
  14. BIOTIN [Concomitant]
  15. CRANBERRY [Concomitant]
  16. MAG-OXIDE [Concomitant]
  17. ZINC [Concomitant]

REACTIONS (1)
  - CEREBROVASCULAR ACCIDENT [None]
